FAERS Safety Report 20713439 (Version 1)
Quarter: 2022Q2

REPORT INFORMATION
  Report Type: Spontaneous
  Country: US (occurrence: US)
  Receive Date: 20220415
  Receipt Date: 20220415
  Transmission Date: 20220721
  Serious: No
  Sender: FDA-Public Use
  Company Number: US-BAYER-2022A053516

PATIENT
  Age: 83 Year
  Sex: Female

DRUGS (1)
  1. MIRALAX [Suspect]
     Active Substance: POLYETHYLENE GLYCOL 3350
     Dosage: ONCE A DAY
     Route: 048
     Dates: start: 20220308, end: 20220308

REACTIONS (2)
  - Malaise [Recovered/Resolved with Sequelae]
  - Nausea [None]

NARRATIVE: CASE EVENT DATE: 20220308
